FAERS Safety Report 12254205 (Version 2)
Quarter: 2016Q2

REPORT INFORMATION
  Report Type: Spontaneous
  Country: US (occurrence: US)
  Receive Date: 20160411
  Receipt Date: 20160413
  Transmission Date: 20160815
  Serious: Yes (Hospitalization, Other)
  Sender: FDA-Public Use
  Company Number: US-JNJFOC-20160403492

PATIENT
  Age: 78 Year
  Sex: Female

DRUGS (7)
  1. SOTALOL. [Concomitant]
     Active Substance: SOTALOL
     Route: 065
  2. XARELTO [Suspect]
     Active Substance: RIVAROXABAN
     Indication: CEREBROVASCULAR ACCIDENT PROPHYLAXIS
     Route: 048
     Dates: end: 201511
  3. XARELTO [Suspect]
     Active Substance: RIVAROXABAN
     Indication: ATRIAL FIBRILLATION
     Route: 048
     Dates: end: 201511
  4. MULTAQ [Concomitant]
     Active Substance: DRONEDARONE
     Route: 065
  5. PROPANOLOL [Concomitant]
     Active Substance: PROPRANOLOL HYDROCHLORIDE
     Route: 065
  6. LASIX [Concomitant]
     Active Substance: FUROSEMIDE
     Route: 065
  7. SIMVASTATIN. [Concomitant]
     Active Substance: SIMVASTATIN
     Route: 065

REACTIONS (4)
  - Gastrointestinal haemorrhage [Recovered/Resolved]
  - Hypertension [Unknown]
  - Cardiac failure congestive [Unknown]
  - Diabetes mellitus [Unknown]

NARRATIVE: CASE EVENT DATE: 201511
